FAERS Safety Report 15633536 (Version 1)
Quarter: 2018Q4

REPORT INFORMATION
  Report Type: Spontaneous
  Country: US (occurrence: US)
  Receive Date: 20181119
  Receipt Date: 20181119
  Transmission Date: 20190205
  Serious: No
  Sender: FDA-Public Use
  Company Number: US-PFIZER INC-2018468009

PATIENT
  Age: 16 Year
  Sex: Female

DRUGS (1)
  1. GENOTROPIN [Suspect]
     Active Substance: SOMATROPIN
     Dosage: 3.4 MG, DAILY
     Dates: start: 20180904

REACTIONS (4)
  - Blood thyroid stimulating hormone increased [Unknown]
  - Blood cholesterol decreased [Unknown]
  - Vitamin D increased [Unknown]
  - Blood triglycerides increased [Unknown]
